FAERS Safety Report 7689810 (Version 4)
Quarter: 2013Q4

REPORT INFORMATION
  Report Type: Spontaneous
  Country: US (occurrence: US)
  Receive Date: 20101202
  Receipt Date: 20131022
  Transmission Date: 20140711
  Serious: Yes (Hospitalization, Other)
  Sender: FDA-Public Use
  Company Number: US-ROCHE-723030

PATIENT
  Age: 16 Year
  Sex: Male

DRUGS (6)
  1. ACCUTANE [Suspect]
     Indication: ACNE
     Dosage: STOP DATE REPORTED AS 31 SEP 98, LATER 80 MG AT NIGHT
     Route: 048
     Dates: start: 19980601, end: 199809
  2. ACCUTANE [Suspect]
     Route: 048
     Dates: start: 1998, end: 1999
  3. MINOCYCLINE [Concomitant]
     Route: 048
  4. NUPRIN [Concomitant]
  5. DIFFERIN [Concomitant]
  6. MARIJUANA [Concomitant]
     Route: 065

REACTIONS (12)
  - Crohn^s disease [Unknown]
  - Intestinal obstruction [Unknown]
  - Inflammatory bowel disease [Unknown]
  - Gastrointestinal injury [Unknown]
  - Colonic fistula [Unknown]
  - Anal abscess [Unknown]
  - Headache [Unknown]
  - Nausea [Unknown]
  - Musculoskeletal pain [Unknown]
  - Fatigue [Unknown]
  - Nasal dryness [Unknown]
  - Blood cholesterol decreased [Unknown]
